FAERS Safety Report 8057714-4 (Version None)
Quarter: 2012Q1

REPORT INFORMATION
  Report Type: 
  Country: None (occurrence: None)
  Receive Date: 20120120
  Receipt Date: 20120110
  Transmission Date: 20120608
  Serious: No
  Sender: FDA-Public Use
  Company Number: US-BIOGENIDEC-2012BI001335

PATIENT
  Age: 40 Year
  Sex: Male

DRUGS (3)
  1. BENADRYL [Concomitant]
     Indication: DRUG THERAPY
  2. STEROIDS [Concomitant]
     Indication: DRUG THERAPY
  3. TYSABRI [Suspect]
     Indication: MULTIPLE SCLEROSIS
     Route: 042
     Dates: start: 20111212

REACTIONS (1)
  - HYPERSENSITIVITY [None]
